FAERS Safety Report 23682435 (Version 2)
Quarter: 2024Q1

REPORT INFORMATION
  Report Type: Report from Study
  Country: DE (occurrence: DE)
  Receive Date: 20240328
  Receipt Date: 20240329
  Transmission Date: 20240410
  Serious: Yes (Other)
  Sender: FDA-Public Use
  Company Number: DE-AMGEN-DEUSP2024052807

PATIENT
  Age: 22 Year

DRUGS (2)
  1. BEVACIZUMAB [Suspect]
     Active Substance: BEVACIZUMAB
     Indication: Corneal disorder
     Dosage: 2 MILLIGRAM (SUBCONJUNCTIVAL)
     Route: 057
  2. BEVACIZUMAB [Suspect]
     Active Substance: BEVACIZUMAB
     Indication: Limbal stem cell deficiency

REACTIONS (5)
  - Ulcerative keratitis [Unknown]
  - Suture related complication [Unknown]
  - Persistent corneal epithelial defect [Unknown]
  - Post procedural complication [Unknown]
  - Corneal disorder [Unknown]
